FAERS Safety Report 5709827-7 (Version None)
Quarter: 2008Q2

REPORT INFORMATION
  Report Type: 
  Country: None (occurrence: None)
  Receive Date: 20080418
  Receipt Date: 20070402
  Transmission Date: 20081010
  Serious: No
  Sender: FDA-Public Use
  Company Number: US-ASTRAZENECA-2007UW06525

PATIENT
  Age: 65 Year
  Sex: Male
  Weight: 113.4 kg

DRUGS (4)
  1. TOPROL-XL [Suspect]
     Indication: HYPERTENSION
     Route: 048
  2. TOPROL-XL [Suspect]
     Route: 048
     Dates: start: 20050101
  3. HYDROCHLOROTHIAZIDE [Concomitant]
  4. WELCHOL [Concomitant]

REACTIONS (1)
  - WEIGHT LOSS POOR [None]
